FAERS Safety Report 24678200 (Version 2)
Quarter: 2024Q4

REPORT INFORMATION
  Report Type: Report from Study
  Country: CA (occurrence: CA)
  Receive Date: 20241129
  Receipt Date: 20241210
  Transmission Date: 20250115
  Serious: Yes (Hospitalization, Other)
  Sender: TAKEDA
  Company Number: CA-TAKEDA-2024TUS116529

PATIENT
  Sex: Female

DRUGS (3)
  1. VEDOLIZUMAB [Suspect]
     Active Substance: VEDOLIZUMAB
     Indication: Crohn^s disease
     Dosage: 300 MILLIGRAM
     Dates: start: 20241016, end: 20241030
  2. METHOTREXATE [Concomitant]
     Active Substance: METHOTREXATE
     Dosage: 20 MILLIGRAM
  3. PREDNISONE [Concomitant]
     Active Substance: PREDNISONE
     Dosage: 5 MILLIGRAM

REACTIONS (6)
  - Loss of consciousness [Unknown]
  - Dehydration [Unknown]
  - Asthenia [Unknown]
  - Diarrhoea [Unknown]
  - Fall [Unknown]
  - Nausea [Unknown]
